FAERS Safety Report 14254040 (Version 3)
Quarter: 2018Q2

REPORT INFORMATION
  Report Type: Spontaneous
  Country: GB (occurrence: GB)
  Receive Date: 20171206
  Receipt Date: 20180629
  Transmission Date: 20180711
  Serious: Yes (Death, Hospitalization, Other)
  Sender: FDA-Public Use
  Company Number: GB-BIOGEN-2017BI00491816

PATIENT
  Age: 42 Year
  Sex: Female

DRUGS (1)
  1. TECFIDERA [Suspect]
     Active Substance: DIMETHYL FUMARATE
     Indication: RELAPSING-REMITTING MULTIPLE SCLEROSIS
     Route: 065
     Dates: start: 201507, end: 201607

REACTIONS (6)
  - Listeriosis [Fatal]
  - Malaise [Unknown]
  - Coma [Unknown]
  - Diarrhoea [Unknown]
  - Vomiting [Unknown]
  - Encephalitis [Unknown]

NARRATIVE: CASE EVENT DATE: 2016
